FAERS Safety Report 9860116 (Version 1)
Quarter: 2014Q1

REPORT INFORMATION
  Report Type: Spontaneous
  Country: AU (occurrence: AU)
  Receive Date: 20140201
  Receipt Date: 20140201
  Transmission Date: 20141002
  Serious: Yes (Other)
  Sender: FDA-Public Use
  Company Number: AU-ROXANE LABORATORIES, INC.-2014-RO-00109RO

PATIENT
  Age: 30 Year
  Sex: Male

DRUGS (3)
  1. MERCAPTOPURINE [Suspect]
     Indication: CROHN^S DISEASE
     Dosage: 100 MG
  2. PREDNISONE [Suspect]
     Indication: CROHN^S DISEASE
  3. INFLIXIMAB [Suspect]
     Indication: CROHN^S DISEASE

REACTIONS (3)
  - Hodgkin^s disease [Recovered/Resolved]
  - Epstein-Barr viraemia [Recovered/Resolved]
  - Large intestine perforation [Unknown]
